FAERS Safety Report 10521803 (Version 2)
Quarter: 2014Q4

REPORT INFORMATION
  Report Type: Spontaneous
  Country: CH (occurrence: None)
  Receive Date: 20141014
  Receipt Date: 20141022
  Transmission Date: 20150528
  Serious: Yes (Hospitalization)
  Sender: FDA-Public Use
  Company Number: 20140639

PATIENT
  Age: 28 Year
  Sex: Female

DRUGS (3)
  1. LUDEAL (ETHINYLESTRADIOL, LEVONORGESTREL) [Concomitant]
  2. TRANSIPEG [Concomitant]
     Active Substance: POLYETHYLENE GLYCOL 3350
  3. FERINJECT [Suspect]
     Active Substance: FERRIC CARBOXYMALTOSE
     Indication: ANAEMIA
     Dosage: 1 TOTAL
     Route: 041
     Dates: start: 20140825, end: 20140825

REACTIONS (7)
  - Myalgia [None]
  - Asthenia [None]
  - Headache [None]
  - Pain [None]
  - Hypophosphataemia [None]
  - Palpitations [None]
  - Arthralgia [None]

NARRATIVE: CASE EVENT DATE: 20140828
